FAERS Safety Report 9944769 (Version 1)
Quarter: 2014Q1

REPORT INFORMATION
  Report Type: Spontaneous
  Country: US (occurrence: US)
  Receive Date: 20140303
  Receipt Date: 20140303
  Transmission Date: 20141002
  Serious: No
  Sender: FDA-Public Use
  Company Number: US-ABBVIE-13P-163-1048949-00

PATIENT
  Sex: Female

DRUGS (5)
  1. HUMIRA [Suspect]
     Indication: PSORIATIC ARTHROPATHY
     Dates: start: 200807
  2. HUMIRA [Suspect]
     Indication: PSORIASIS
  3. ORTHORYCYCLLINE [Concomitant]
     Indication: POLYCYSTIC OVARIES
  4. SYNTHROID [Concomitant]
     Indication: HYPOTHYROIDISM
  5. ZYRTEC [Concomitant]
     Indication: HYPERSENSITIVITY

REACTIONS (2)
  - Sinusitis [Not Recovered/Not Resolved]
  - Influenza [Recovered/Resolved]
